FAERS Safety Report 15735149 (Version 2)
Quarter: 2018Q4

REPORT INFORMATION
  Report Type: Report from Study
  Country: None (occurrence: US)
  Receive Date: 20181218
  Receipt Date: 20181219
  Transmission Date: 20190205
  Serious: Yes (Hospitalization)
  Sender: FDA-Public Use
  Company Number: US-ABBVIE-18P-163-2594502-00

PATIENT
  Age: 29 Year
  Sex: Female

DRUGS (2)
  1. ORILISSA [Suspect]
     Active Substance: ELAGOLIX SODIUM
     Indication: ENDOMETRIOSIS
     Route: 048
     Dates: start: 201809, end: 20181207
  2. IBUPROFEN. [Concomitant]
     Active Substance: IBUPROFEN
     Indication: ENDOMETRIOSIS

REACTIONS (3)
  - Gait inability [Not Recovered/Not Resolved]
  - Endometriosis [Not Recovered/Not Resolved]
  - Pain [Not Recovered/Not Resolved]

NARRATIVE: CASE EVENT DATE: 201812
